FAERS Safety Report 10054143 (Version 1)
Quarter: 2014Q2

REPORT INFORMATION
  Report Type: Spontaneous
  Country: US (occurrence: US)
  Receive Date: 20140402
  Receipt Date: 20140402
  Transmission Date: 20141212
  Serious: Yes (Other)
  Sender: FDA-Public Use
  Company Number: US-AMGEN-USASP2014017040

PATIENT
  Age: 57 Year
  Sex: Female

DRUGS (1)
  1. ENBREL [Suspect]
     Indication: RHEUMATOID ARTHRITIS
     Dosage: 50 MG, QWK
     Route: 065
     Dates: start: 2013, end: 201402

REACTIONS (4)
  - Respiratory tract infection [Not Recovered/Not Resolved]
  - Fear of injection [Not Recovered/Not Resolved]
  - Anxiety [Not Recovered/Not Resolved]
  - Sinusitis [Not Recovered/Not Resolved]
